FAERS Safety Report 20906139 (Version 1)
Quarter: 2022Q2

REPORT INFORMATION
  Report Type: Spontaneous
  Country: US (occurrence: US)
  Receive Date: 20220602
  Receipt Date: 20220602
  Transmission Date: 20220721
  Serious: No
  Sender: FDA-Public Use
  Company Number: US-COLLEGIUM PHARMACEUTICAL, INC.-2021CGM00712

PATIENT
  Age: 60 Year
  Sex: Male
  Weight: 113.38 kg

DRUGS (24)
  1. XTAMPZA ER [Suspect]
     Active Substance: OXYCODONE
     Indication: Intervertebral disc protrusion
     Dosage: 27 MG, 2X/DAY (EVERY 12 HOURS)
     Route: 048
     Dates: start: 20210208, end: 202103
  2. XTAMPZA ER [Suspect]
     Active Substance: OXYCODONE
     Indication: Spinal osteoarthritis
  3. XTAMPZA ER [Suspect]
     Active Substance: OXYCODONE
     Indication: Pain
  4. XTAMPZA ER [Suspect]
     Active Substance: OXYCODONE
     Indication: Back pain
  5. XTAMPZA ER [Suspect]
     Active Substance: OXYCODONE
     Indication: Intervertebral disc protrusion
     Dosage: 18 MG, 2X/DAY (EVERY 12 HOURS)
     Route: 048
     Dates: start: 20210325, end: 20210812
  6. XTAMPZA ER [Suspect]
     Active Substance: OXYCODONE
     Indication: Spinal osteoarthritis
  7. XTAMPZA ER [Suspect]
     Active Substance: OXYCODONE
     Indication: Pain
  8. XTAMPZA ER [Suspect]
     Active Substance: OXYCODONE
     Indication: Back pain
  9. PERCOCET [Concomitant]
     Active Substance: ACETAMINOPHEN\OXYCODONE HYDROCHLORIDE
     Dosage: 2 DOSAGE UNITS, PER DAY
     Dates: end: 20210517
  10. PERCOCET [Concomitant]
     Active Substance: ACETAMINOPHEN\OXYCODONE HYDROCHLORIDE
     Dosage: UNK
     Dates: start: 20210518
  11. OMEPRAZOLE AND SODIUM BICARBONATE [Concomitant]
     Active Substance: OMEPRAZOLE\SODIUM BICARBONATE
  12. MELOXICAM [Concomitant]
     Active Substance: MELOXICAM
     Dosage: 15 MG, 1X/DAY
  13. LOSARTAN [Concomitant]
     Active Substance: LOSARTAN
  14. TAMSULOSIN [Concomitant]
     Active Substance: TAMSULOSIN
  15. TERAZOSIN [Concomitant]
     Active Substance: TERAZOSIN HYDROCHLORIDE
  16. DULOXETINE [Concomitant]
     Active Substance: DULOXETINE
     Dosage: 90 MG (60 MG + 30 MG)
  17. DULOXETINE [Concomitant]
     Active Substance: DULOXETINE
     Dosage: 90 MG (60 MG + 30 MG)
  18. HYDROCHLOROTHIAZIDE [Concomitant]
     Active Substance: HYDROCHLOROTHIAZIDE
     Dosage: UNK
     Dates: start: 2020
  19. METFORMIN [Concomitant]
     Active Substance: METFORMIN HYDROCHLORIDE
     Dosage: 1000 MG, 2X/DAY
  20. LIVALO [Concomitant]
     Active Substance: PITAVASTATIN CALCIUM
  21. PREGABALIN [Concomitant]
     Active Substance: PREGABALIN
     Dosage: 100 MG, 3X/DAY
  22. DESLORATADINE [Concomitant]
     Active Substance: DESLORATADINE
  23. LEVOTHYROXINE [Concomitant]
     Active Substance: LEVOTHYROXINE
  24. CYCLOBENZAPRINE [Concomitant]
     Active Substance: CYCLOBENZAPRINE

REACTIONS (2)
  - Gastric disorder [Recovered/Resolved]
  - Diarrhoea [Recovered/Resolved]

NARRATIVE: CASE EVENT DATE: 20210201
